FAERS Safety Report 23920843 (Version 5)
Quarter: 2024Q4

REPORT INFORMATION
  Report Type: Spontaneous
  Country: US (occurrence: US)
  Receive Date: 20240530
  Receipt Date: 20241223
  Transmission Date: 20250115
  Serious: No
  Sender: KARYOPHARM THERAPEUTICS
  Company Number: US-KARYOPHARM-2024KPT001074

PATIENT

DRUGS (20)
  1. XPOVIO [Suspect]
     Active Substance: SELINEXOR
     Indication: Plasma cell myeloma refractory
     Dosage: 40 MG, WEEKLY
     Route: 048
     Dates: start: 202404, end: 20241218
  2. POMALYST [Concomitant]
     Active Substance: POMALIDOMIDE
     Dosage: 3 MG, QD 3 WEEKS ON 1 WEEK OFF
  3. ZOVIRAX [Concomitant]
     Active Substance: ACYCLOVIR
  4. AMITRIPTYLINE [Concomitant]
     Active Substance: AMITRIPTYLINE
  5. ASPIRIN [Concomitant]
     Active Substance: ASPIRIN
  6. XGEVA [Concomitant]
     Active Substance: DENOSUMAB
  7. DEXAMETHASONE [Concomitant]
     Active Substance: DEXAMETHASONE
  8. CYMBALTA [Concomitant]
     Active Substance: DULOXETINE HYDROCHLORIDE
  9. NEXIUM [Concomitant]
     Active Substance: ESOMEPRAZOLE MAGNESIUM
  10. NOVOLOG [Concomitant]
     Active Substance: INSULIN ASPART
  11. BASAGLAR KWIKPEN [Concomitant]
     Active Substance: INSULIN GLARGINE
  12. JARDIANCE [Concomitant]
     Active Substance: EMPAGLIFLOZIN
  13. LIDOCAINE AND PRILOCAINE [Concomitant]
     Active Substance: LIDOCAINE\PRILOCAINE
  14. ATIVAN [Concomitant]
     Active Substance: LORAZEPAM
  15. LOVASTATIN [Concomitant]
     Active Substance: LOVASTATIN
  16. METOPROLOL SUCCINATE [Concomitant]
     Active Substance: METOPROLOL SUCCINATE
  17. ZOFRAN [Concomitant]
     Active Substance: ONDANSETRON HYDROCHLORIDE
  18. OZEMPIC [Concomitant]
     Active Substance: SEMAGLUTIDE
  19. LYRICA [Concomitant]
     Active Substance: PREGABALIN
  20. SYNTHROID [Concomitant]
     Active Substance: LEVOTHYROXINE SODIUM

REACTIONS (6)
  - Neuropathy peripheral [Not Recovered/Not Resolved]
  - Dysgeusia [Not Recovered/Not Resolved]
  - Plasma cell myeloma [Not Recovered/Not Resolved]
  - Drug ineffective [Unknown]
  - Weight decreased [Unknown]
  - Fatigue [Not Recovered/Not Resolved]

NARRATIVE: CASE EVENT DATE: 20240101
